FAERS Safety Report 7107827-6 (Version None)
Quarter: 2010Q4

REPORT INFORMATION
  Report Type: 
  Country: None (occurrence: None)
  Receive Date: 20101117
  Receipt Date: 20100922
  Transmission Date: 20110411
  Serious: Yes (Hospitalization)
  Sender: FDA-Public Use
  Company Number: US-BAYER-200934337NA

PATIENT
  Age: 21 Year
  Sex: Female
  Weight: 67 kg

DRUGS (9)
  1. YAZ [Suspect]
     Indication: PRODUCT USED FOR UNKNOWN INDICATION
     Route: 048
  2. YASMIN [Suspect]
     Indication: CONTRACEPTION
     Dates: start: 20060515, end: 20070929
  3. ASCORBIC ACID [Concomitant]
  4. IBUPROFEN [Concomitant]
  5. ESTROSTEP [Concomitant]
     Indication: CONTRACEPTION
     Dates: start: 20060101, end: 20060401
  6. LEVAQUIN [Concomitant]
     Dosage: TOTAL DAILY DOSE: 1500 MG
     Route: 048
  7. FLAGYL [Concomitant]
     Dosage: AS USED: 500 MG
     Route: 048
  8. PHENERGAN [Concomitant]
     Indication: NAUSEA
     Dosage: AS USED: 12.5 MG
  9. LEVSIN [Concomitant]
     Indication: ABDOMINAL DISCOMFORT
     Dosage: AS USED: 0.25 MG
     Route: 060

REACTIONS (1)
  - PULMONARY EMBOLISM [None]
